FAERS Safety Report 8236976-4 (Version None)
Quarter: 2012Q1

REPORT INFORMATION
  Report Type: 
  Country: None (occurrence: None)
  Receive Date: 20120326
  Receipt Date: 20120326
  Transmission Date: 20120608
  Serious: Yes (Disabling)
  Sender: FDA-Public Use
  Company Number: None

PATIENT
  Age: 55 Year
  Sex: Male
  Weight: 102.0593 kg

DRUGS (4)
  1. PREDNISONE TAB [Suspect]
     Indication: PARAESTHESIA
     Dates: start: 20110301
  2. PREDNISONE TAB [Suspect]
     Indication: BACK DISORDER
     Dates: start: 20110301
  3. PREDNISONE TAB [Suspect]
     Indication: UNEVALUABLE EVENT
     Dates: start: 20110301
  4. PREDNISONE TAB [Suspect]
     Indication: PAIN IN EXTREMITY
     Dates: start: 20110301

REACTIONS (7)
  - ARTHRALGIA [None]
  - CONDITION AGGRAVATED [None]
  - PEYRONIE'S DISEASE [None]
  - PELVIC PAIN [None]
  - GENERALISED OEDEMA [None]
  - OEDEMA PERIPHERAL [None]
  - PAIN IN EXTREMITY [None]
